FAERS Safety Report 23610109 (Version 1)
Quarter: 2024Q1

REPORT INFORMATION
  Report Type: Spontaneous
  Country: US (occurrence: US)
  Receive Date: 20240308
  Receipt Date: 20240308
  Transmission Date: 20240410
  Serious: Yes (Other)
  Sender: FDA-Public Use
  Company Number: US-BAYER-2024A034425

PATIENT
  Age: 36 Year
  Sex: Female

DRUGS (1)
  1. ASPIRIN [Suspect]
     Active Substance: ASPIRIN
     Indication: Gynaecological disorder prophylaxis
     Dosage: UNK
     Route: 048

REACTIONS (4)
  - Haemorrhage in pregnancy [None]
  - Off label use [Unknown]
  - Maternal exposure during delivery [Unknown]
  - Contraindicated product administered [None]
